FAERS Safety Report 23063038 (Version 1)
Quarter: 2023Q4

REPORT INFORMATION
  Report Type: Spontaneous
  Country: AT (occurrence: None)
  Receive Date: 20231013
  Receipt Date: 20231013
  Transmission Date: 20240110
  Serious: Yes (Other)
  Sender: FDA-Public Use
  Company Number: AT-ROCHE-3435310

PATIENT
  Age: 47 Year
  Sex: Female

DRUGS (1)
  1. OCREVUS [Suspect]
     Active Substance: OCRELIZUMAB
     Indication: Product used for unknown indication
     Route: 065
     Dates: start: 20080402

REACTIONS (3)
  - Pneumonia [Unknown]
  - Fungal oesophagitis [Unknown]
  - Hypogammaglobulinaemia [Unknown]

NARRATIVE: CASE EVENT DATE: 20230710
